FAERS Safety Report 23266358 (Version 1)
Quarter: 2023Q4

REPORT INFORMATION
  Report Type: Spontaneous
  Country: RU (occurrence: RU)
  Receive Date: 20231206
  Receipt Date: 20231206
  Transmission Date: 20240109
  Serious: Yes (Other)
  Sender: FDA-Public Use
  Company Number: RU-MLMSERVICE-20231116-4666662-1

PATIENT

DRUGS (1)
  1. ATORVASTATIN [Suspect]
     Active Substance: ATORVASTATIN
     Indication: Product used for unknown indication
     Dosage: TAKEN FOR MORE THAN THREE MONTHS.
     Route: 065

REACTIONS (6)
  - Erectile dysfunction [Unknown]
  - Pregnenolone deficiency [Unknown]
  - Libido decreased [Unknown]
  - Blood pressure increased [Unknown]
  - Somnolence [Unknown]
  - Dyspnoea [Unknown]
